FAERS Safety Report 9401202 (Version 1)
Quarter: 2013Q3

REPORT INFORMATION
  Report Type: Spontaneous
  Country: US (occurrence: US)
  Receive Date: 20130715
  Receipt Date: 20130715
  Transmission Date: 20140515
  Serious: No
  Sender: FDA-Public Use
  Company Number: US-009507513-1307USA004859

PATIENT
  Sex: Female
  Weight: 76.64 kg

DRUGS (5)
  1. NASONEX [Suspect]
     Indication: HYPERSENSITIVITY
     Dosage: UNK
     Route: 045
  2. OMNARIS [Suspect]
     Indication: HYPERSENSITIVITY
     Dosage: 2 DF, PRN
     Route: 045
     Dates: start: 2011
  3. LIPITOR [Concomitant]
     Dosage: UNK
     Dates: start: 201301
  4. ALEVE [Concomitant]
     Dosage: UNK
  5. FLUTICASONE [Concomitant]
     Dosage: UNK
     Dates: end: 201305

REACTIONS (1)
  - Emotional disorder [Recovered/Resolved]
